FAERS Safety Report 9787730 (Version 9)
Quarter: 2014Q4

REPORT INFORMATION
  Report Type: Report from Study
  Country: CA (occurrence: CA)
  Receive Date: 20131230
  Receipt Date: 20141103
  Transmission Date: 20150529
  Serious: Yes (Other)
  Sender: FDA-Public Use
  Company Number: CA-ROCHE-1325476

PATIENT
  Age: 55 Year
  Sex: Female
  Weight: 104.3 kg

DRUGS (15)
  1. VAGIFEM [Concomitant]
     Active Substance: ESTRADIOL
  2. ACTEMRA [Suspect]
     Active Substance: TOCILIZUMAB
     Route: 042
     Dates: start: 20140115
  3. ACTEMRA [Suspect]
     Active Substance: TOCILIZUMAB
     Route: 042
     Dates: start: 20140219
  4. ACTEMRA [Suspect]
     Active Substance: TOCILIZUMAB
     Route: 042
     Dates: start: 20140910, end: 20140910
  5. ACETAMINOPHEN. [Concomitant]
     Active Substance: ACETAMINOPHEN
  6. PANTOLOC [Concomitant]
     Active Substance: PANTOPRAZOLE SODIUM
  7. ACTEMRA [Suspect]
     Active Substance: TOCILIZUMAB
     Route: 042
     Dates: start: 20140430
  8. ACTEMRA [Suspect]
     Active Substance: TOCILIZUMAB
     Indication: RHEUMATOID ARTHRITIS
     Route: 042
     Dates: start: 20131023
  9. NICODERM CQ [Concomitant]
     Active Substance: NICOTINE
  10. EURO-FOLIC [Concomitant]
  11. METHOTREXATE [Concomitant]
     Active Substance: METHOTREXATE
  12. ADVAIR HFA [Concomitant]
     Active Substance: FLUTICASONE PROPIONATE\SALMETEROL XINAFOATE
  13. METOCLOPRAMIDE. [Concomitant]
     Active Substance: METOCLOPRAMIDE
  14. PREGABALIN. [Concomitant]
     Active Substance: PREGABALIN
  15. ATROVENT [Concomitant]
     Active Substance: IPRATROPIUM BROMIDE

REACTIONS (17)
  - Arthralgia [Recovered/Resolved]
  - Blood cholesterol increased [Not Recovered/Not Resolved]
  - Blood urea increased [Unknown]
  - Blood lactate dehydrogenase increased [Unknown]
  - Alanine aminotransferase increased [Unknown]
  - Herpes zoster [Recovered/Resolved]
  - Neck pain [Not Recovered/Not Resolved]
  - Acne [Not Recovered/Not Resolved]
  - Dizziness [Not Recovered/Not Resolved]
  - Fungal infection [Recovered/Resolved]
  - Vaginal haemorrhage [Recovered/Resolved]
  - VIIth nerve paralysis [Recovered/Resolved]
  - Viral infection [Recovered/Resolved]
  - Abdominal pain lower [Recovered/Resolved]
  - Blood triglycerides increased [Unknown]
  - Monocyte count increased [Unknown]
  - Fatigue [Not Recovered/Not Resolved]

NARRATIVE: CASE EVENT DATE: 201312
